FAERS Safety Report 18067194 (Version 1)
Quarter: 2020Q3

REPORT INFORMATION
  Report Type: Spontaneous
  Country: US (occurrence: US)
  Receive Date: 20200724
  Receipt Date: 20200724
  Transmission Date: 20201103
  Serious: Yes (Hospitalization, Other)
  Sender: FDA-Public Use
  Company Number: US-PURDUE-USA-2020-0159029

PATIENT
  Sex: Female

DRUGS (3)
  1. HYDROCODONE BITARTRATE/ACETAMINOPHEN [Suspect]
     Active Substance: ACETAMINOPHEN\HYDROCODONE BITARTRATE
     Indication: PRODUCT USED FOR UNKNOWN INDICATION
     Route: 064
  2. NORCO [Suspect]
     Active Substance: ACETAMINOPHEN\HYDROCODONE BITARTRATE
     Indication: PRODUCT USED FOR UNKNOWN INDICATION
     Route: 065
  3. GUANFACINE. [Concomitant]
     Active Substance: GUANFACINE
     Indication: PRODUCT USED FOR UNKNOWN INDICATION
     Dosage: 1 MG, UNK
     Route: 048

REACTIONS (12)
  - Drug withdrawal syndrome neonatal [Unknown]
  - Constipation [Unknown]
  - Cough [Unknown]
  - Seizure [Unknown]
  - Sneezing [Unknown]
  - Hospitalisation [Unknown]
  - Foetal exposure during pregnancy [Unknown]
  - Jaundice neonatal [Recovered/Resolved]
  - Maternal condition affecting foetus [Recovered/Resolved]
  - Bronchiolitis [Unknown]
  - Arthralgia [Unknown]
  - Attention deficit hyperactivity disorder [Recovered/Resolved]

NARRATIVE: CASE EVENT DATE: 20130125
